FAERS Safety Report 10511906 (Version 2)
Quarter: 2014Q4

REPORT INFORMATION
  Report Type: Spontaneous
  Country: US (occurrence: US)
  Receive Date: 20141010
  Receipt Date: 20141014
  Transmission Date: 20150528
  Serious: Yes (Other)
  Sender: FDA-Public Use
  Company Number: US-GILEAD-2014-0117967

PATIENT
  Age: 66 Year
  Sex: Female

DRUGS (3)
  1. VENTAVIS [Concomitant]
     Active Substance: ILOPROST
  2. LETAIRIS [Suspect]
     Active Substance: AMBRISENTAN
     Indication: PRODUCT USED FOR UNKNOWN INDICATION
     Dosage: 10 MG, QD
     Route: 065
     Dates: start: 20110405
  3. LISINOPRIL. [Concomitant]
     Active Substance: LISINOPRIL

REACTIONS (5)
  - Dyspnoea [Recovered/Resolved]
  - Renal failure [Unknown]
  - Chest discomfort [Recovered/Resolved]
  - Thrombosis [Unknown]
  - Pulmonary hypertension [Recovered/Resolved]
